FAERS Safety Report 7039045-4 (Version None)
Quarter: 2010Q4

REPORT INFORMATION
  Report Type: 
  Country: None (occurrence: None)
  Receive Date: 20101012
  Receipt Date: 20100927
  Transmission Date: 20110411
  Serious: Yes (Other)
  Sender: FDA-Public Use
  Company Number: US-BAYER-200935875NA

PATIENT
  Age: 60 Year
  Sex: Female
  Weight: 110 kg

DRUGS (25)
  1. MAGNEVIST [Suspect]
     Indication: NUCLEAR MAGNETIC RESONANCE IMAGING BRAIN
     Route: 042
     Dates: start: 20020423, end: 20020423
  2. MAGNEVIST [Suspect]
     Dosage: TOTAL DAILY DOSE: 20 ML
     Dates: start: 20061115, end: 20061115
  3. MAGNEVIST [Suspect]
     Dates: start: 20030204, end: 20030204
  4. OMNISCAN [Suspect]
     Indication: IMAGING PROCEDURE
  5. OPTIMARK [Suspect]
     Indication: IMAGING PROCEDURE
  6. MULTIHANCE [Suspect]
     Indication: IMAGING PROCEDURE
  7. PROHANCE [Suspect]
     Indication: IMAGING PROCEDURE
  8. UNKNOWN GBCA [Suspect]
     Indication: NUCLEAR MAGNETIC RESONANCE IMAGING ABDOMINAL
     Dosage: TOTAL DAILY DOSE: 20 ML
     Dates: start: 20061115, end: 20061115
  9. ACTOS [Concomitant]
  10. LIPITOR [Concomitant]
  11. REQUIP [Concomitant]
  12. INTERFERON [Concomitant]
  13. RIBAVIRIN [Concomitant]
  14. DIALYVITE [Concomitant]
  15. EPO [Concomitant]
     Dosage: AS USED: 40,000 U
  16. SENSIPAR [Concomitant]
  17. RENAGEL [Concomitant]
  18. TOPROL-XL [Concomitant]
  19. PROCRIT [Concomitant]
  20. FERREX [Concomitant]
  21. NORVASC [Concomitant]
  22. DIOVAN [Concomitant]
  23. CALCITRIOL [Concomitant]
  24. VITAMIN K TAB [Concomitant]
     Route: 042
     Dates: start: 20090601
  25. HECTOROL [Concomitant]

REACTIONS (17)
  - BACK PAIN [None]
  - FATIGUE [None]
  - FIBROSIS [None]
  - FORMICATION [None]
  - GAIT DISTURBANCE [None]
  - GENERAL PHYSICAL HEALTH DETERIORATION [None]
  - MASS [None]
  - MUSCULOSKELETAL STIFFNESS [None]
  - NEPHROGENIC SYSTEMIC FIBROSIS [None]
  - OEDEMA PERIPHERAL [None]
  - PAIN [None]
  - PAIN IN EXTREMITY [None]
  - PRURITUS [None]
  - RASH [None]
  - SKIN DISCOLOURATION [None]
  - SKIN FIBROSIS [None]
  - SKIN INDURATION [None]
